FAERS Safety Report 8142239-8 (Version None)
Quarter: 2012Q1

REPORT INFORMATION
  Report Type: 
  Country: None (occurrence: None)
  Receive Date: 20120216
  Receipt Date: 20120201
  Transmission Date: 20120608
  Serious: Yes (Hospitalization)
  Sender: FDA-Public Use
  Company Number: US-BAYER-2011-075061

PATIENT
  Age: 30 Year
  Sex: Female
  Weight: 68.027 kg

DRUGS (6)
  1. YAZ [Suspect]
     Indication: CONTRACEPTION
     Dosage: UNK
     Route: 048
     Dates: start: 20100101, end: 20110101
  2. YAZ [Suspect]
     Indication: PREMENSTRUAL SYNDROME
  3. BIOTIN [Concomitant]
  4. YAZ [Suspect]
  5. IRON [Concomitant]
  6. LEXAPRO [Concomitant]

REACTIONS (4)
  - GALLBLADDER INJURY [None]
  - PAIN [None]
  - CHOLECYSTITIS ACUTE [None]
  - INJURY [None]
